FAERS Safety Report 7407625-X (Version None)
Quarter: 2011Q2

REPORT INFORMATION
  Report Type: 
  Country: None (occurrence: None)
  Receive Date: 20110412
  Receipt Date: 20110404
  Transmission Date: 20111010
  Serious: Yes (Hospitalization, Other)
  Sender: FDA-Public Use
  Company Number: US-AMGEN-USASP2011007381

PATIENT
  Age: 21 Year
  Sex: Male

DRUGS (1)
  1. PROCRIT [Suspect]
     Indication: SICKLE CELL ANAEMIA

REACTIONS (9)
  - SERUM FERRITIN INCREASED [None]
  - DRUG INEFFECTIVE [None]
  - THERAPEUTIC RESPONSE DECREASED [None]
  - MENTAL STATUS CHANGES [None]
  - PAIN [None]
  - REFRACTORY ANAEMIA [None]
  - RETICULOCYTE COUNT DECREASED [None]
  - MARROW HYPERPLASIA [None]
  - BLOOD PRODUCT TRANSFUSION DEPENDENT [None]
